FAERS Safety Report 8077512-5 (Version None)
Quarter: 2012Q1

REPORT INFORMATION
  Report Type: 
  Country: None (occurrence: None)
  Receive Date: 20120127
  Receipt Date: 20120126
  Transmission Date: 20120608
  Serious: Yes (Other)
  Sender: FDA-Public Use
  Company Number: US-BAYER-2012-008708

PATIENT
  Age: 50 Year
  Sex: Female

DRUGS (3)
  1. BLOOD THINNER [Concomitant]
     Indication: MITRAL VALVE REPLACEMENT
     Dosage: UNK
  2. BETASERON [Suspect]
     Dosage: UNK
     Dates: start: 20110329, end: 20120119
  3. BETASERON [Suspect]
     Indication: RELAPSING-REMITTING MULTIPLE SCLEROSIS
     Dosage: UNK
     Dates: start: 19991221, end: 20011201

REACTIONS (3)
  - JOINT INJURY [None]
  - ARTHRALGIA [None]
  - ADVERSE EVENT [None]
